FAERS Safety Report 10290157 (Version 1)
Quarter: 2014Q3

REPORT INFORMATION
  Report Type: Spontaneous
  Country: US (occurrence: US)
  Receive Date: 20140710
  Receipt Date: 20140710
  Transmission Date: 20150326
  Serious: Yes (Other)
  Sender: FDA-Public Use
  Company Number: US-ASTRAZENECA-2014SE48256

PATIENT
  Sex: Female

DRUGS (2)
  1. BRILINTA [Suspect]
     Active Substance: TICAGRELOR
     Indication: CATHETERISATION CARDIAC
     Route: 048
     Dates: start: 201406, end: 201407
  2. BRILINTA [Suspect]
     Active Substance: TICAGRELOR
     Indication: CATHETERISATION CARDIAC
     Route: 048
     Dates: start: 201406, end: 201406

REACTIONS (1)
  - Electrocardiogram abnormal [Unknown]

NARRATIVE: CASE EVENT DATE: 201406
